FAERS Safety Report 6504617-X (Version None)
Quarter: 2009Q4

REPORT INFORMATION
  Report Type: 
  Country: None (occurrence: None)
  Receive Date: 20091215
  Receipt Date: 20091202
  Transmission Date: 20100525
  Serious: Yes (Other)
  Sender: FDA-Public Use
  Company Number: 2009AP004923

PATIENT
  Age: 13 Year

DRUGS (1)
  1. LITHIUM CARBONATE CAP [Suspect]

REACTIONS (2)
  - GLOMERULONEPHROPATHY [None]
  - RENAL FAILURE [None]
